FAERS Safety Report 17516128 (Version 2)
Quarter: 2020Q1

REPORT INFORMATION
  Report Type: Spontaneous
  Country: ES (occurrence: ES)
  Receive Date: 20200309
  Receipt Date: 20200313
  Transmission Date: 20200409
  Serious: Yes (Other)
  Sender: FDA-Public Use
  Company Number: ES-AMAG PHARMACEUTICALS, INC.-AMAG202000864

PATIENT
  Age: 69 Year
  Sex: Female

DRUGS (3)
  1. KAOLIN [Concomitant]
     Active Substance: KAOLIN
     Indication: IRRITABLE BOWEL SYNDROME
  2. INTRAROSA [Suspect]
     Active Substance: PRASTERONE
     Indication: ATROPHIC VULVOVAGINITIS
     Dosage: 1 DF EVERY 48 HOUR INTERVAL (ALTERNATE DAYS) AT NIGHT
     Route: 067
     Dates: start: 201911
  3. METHYLCELLULOSE [Concomitant]
     Active Substance: METHYLCELLULOSES
     Indication: IRRITABLE BOWEL SYNDROME

REACTIONS (3)
  - Contraindicated product prescribed [Unknown]
  - Intentional product misuse [Unknown]
  - Vulvovaginal burning sensation [Unknown]

NARRATIVE: CASE EVENT DATE: 201911
